FAERS Safety Report 6119018-6 (Version None)
Quarter: 2009Q1

REPORT INFORMATION
  Report Type: 
  Country: None (occurrence: None)
  Receive Date: 20090316
  Receipt Date: 20090304
  Transmission Date: 20090719
  Serious: Yes (Other)
  Sender: FDA-Public Use
  Company Number: BR-BAYER-200913233LA

PATIENT
  Age: 40 Year
  Sex: Female

DRUGS (2)
  1. YAZ [Suspect]
     Indication: ORAL CONTRACEPTION
     Route: 048
     Dates: start: 20080101, end: 20080101
  2. YAZ [Suspect]
     Route: 048
     Dates: start: 20090303

REACTIONS (3)
  - ABORTION SPONTANEOUS [None]
  - BLOOD PRESSURE INCREASED [None]
  - NO ADVERSE EVENT [None]
